FAERS Safety Report 6450131-X (Version None)
Quarter: 2009Q4

REPORT INFORMATION
  Report Type: 
  Country: None (occurrence: None)
  Receive Date: 20091123
  Receipt Date: 20091117
  Transmission Date: 20100525
  Serious: Yes (Other)
  Sender: FDA-Public Use
  Company Number: US-MYLANLABS-2009S1018162

PATIENT
  Age: 35 Year
  Sex: Female

DRUGS (2)
  1. SOTRET [Suspect]
     Route: 048
     Dates: start: 20090202
  2. AMNESTEEM [Suspect]
     Route: 048
     Dates: end: 20090401

REACTIONS (1)
  - DRUG EXPOSURE DURING PREGNANCY [None]
